FAERS Safety Report 15538485 (Version 1)
Quarter: 2018Q4

REPORT INFORMATION
  Report Type: Spontaneous
  Country: US (occurrence: US)
  Receive Date: 20181022
  Receipt Date: 20181022
  Transmission Date: 20190205
  Serious: Yes (Other)
  Sender: FDA-Public Use
  Company Number: None

PATIENT
  Age: 73 Year
  Sex: Female
  Weight: 51.75 kg

DRUGS (22)
  1. LEVOFLOXACIN. [Concomitant]
     Active Substance: LEVOFLOXACIN
  2. IPRATROPIUM [Concomitant]
     Active Substance: IPRATROPIUM
  3. PYRIDOXINE [Concomitant]
     Active Substance: PYRIDOXINE
  4. VERZENIO [Suspect]
     Active Substance: ABEMACICLIB
     Indication: BREAST CANCER FEMALE
     Route: 048
     Dates: start: 20181004
  5. PREDNISONE. [Concomitant]
     Active Substance: PREDNISONE
  6. LEVOTHYROXINE. [Concomitant]
     Active Substance: LEVOTHYROXINE
  7. MULTIVITAMIN [Concomitant]
     Active Substance: VITAMINS
  8. BUMETANIDE. [Concomitant]
     Active Substance: BUMETANIDE
  9. MAGNESIUM OXIDE. [Concomitant]
     Active Substance: MAGNESIUM OXIDE
  10. ROPINIROLE. [Concomitant]
     Active Substance: ROPINIROLE
  11. ASPIRIN. [Concomitant]
     Active Substance: ASPIRIN
  12. GABAPENTIN. [Concomitant]
     Active Substance: GABAPENTIN
  13. GUAIFENESIN. [Concomitant]
     Active Substance: GUAIFENESIN
  14. CALTRATE [Concomitant]
     Active Substance: CALCIUM CARBONATE
  15. FENTANYL. [Concomitant]
     Active Substance: FENTANYL
  16. CLARITIN [Concomitant]
     Active Substance: LORATADINE
  17. VITAMIN D3 [Concomitant]
     Active Substance: CHOLECALCIFEROL
  18. SPIRONOLACTONE. [Concomitant]
     Active Substance: SPIRONOLACTONE
  19. ATIVAN [Concomitant]
     Active Substance: LORAZEPAM
  20. VITAMIN C [Concomitant]
     Active Substance: ASCORBIC ACID
  21. METOPROLOL. [Concomitant]
     Active Substance: METOPROLOL
  22. VITAMIN B12 [Concomitant]
     Active Substance: CYANOCOBALAMIN

REACTIONS (1)
  - Disease progression [None]

NARRATIVE: CASE EVENT DATE: 20181019
